FAERS Safety Report 6694790-5 (Version None)
Quarter: 2010Q2

REPORT INFORMATION
  Report Type: 
  Country: None (occurrence: None)
  Receive Date: 20100423
  Receipt Date: 20100413
  Transmission Date: 20101027
  Serious: Yes (Other)
  Sender: FDA-Public Use
  Company Number: US-CELGENEUS-163-20785-10032510

PATIENT
  Sex: Female

DRUGS (6)
  1. THALOMID [Suspect]
     Indication: MULTIPLE MYELOMA
     Route: 048
     Dates: start: 20091201
  2. THALOMID [Suspect]
     Route: 048
     Dates: start: 20080901
  3. THALOMID [Suspect]
     Route: 048
     Dates: start: 20080801
  4. THALOMID [Suspect]
     Route: 048
     Dates: start: 20050101
  5. THALOMID [Suspect]
     Route: 048
     Dates: start: 20040701
  6. THALOMID [Suspect]
     Route: 048
     Dates: start: 20100217, end: 20100101

REACTIONS (2)
  - BLOOD HUMAN CHORIONIC GONADOTROPIN ABNORMAL [None]
  - BLOOD HUMAN CHORIONIC GONADOTROPIN INCREASED [None]
